FAERS Safety Report 4553371-X (Version None)
Quarter: 2005Q1

REPORT INFORMATION
  Report Type: 
  Country: None (occurrence: None)
  Receive Date: 20050112
  Receipt Date: 20050104
  Transmission Date: 20050727
  Serious: Yes (Death)
  Sender: FDA-Public Use
  Company Number: WAES 0412DEU00194

PATIENT
  Age: 82 Year
  Sex: Female

DRUGS (1)
  1. COSOPT [Suspect]
     Indication: OPEN ANGLE GLAUCOMA
     Dosage: OPHT
     Route: 047
     Dates: start: 20030818, end: 20030101

REACTIONS (1)
  - DEATH [None]
